FAERS Safety Report 9787271 (Version 1)
Quarter: 2013Q4

REPORT INFORMATION
  Report Type: Spontaneous
  Country: CH (occurrence: CH)
  Receive Date: 20131230
  Receipt Date: 20131230
  Transmission Date: 20140711
  Serious: Yes (Hospitalization, Disabling)
  Sender: FDA-Public Use
  Company Number: CH-ROCHE-1322876

PATIENT
  Age: 75 Year
  Sex: Female

DRUGS (2)
  1. CELLCEPT [Suspect]
     Indication: DERMATOMYOSITIS
     Route: 048
     Dates: start: 200703, end: 20130909
  2. PREDNISONE [Suspect]
     Indication: PRODUCT USED FOR UNKNOWN INDICATION
     Route: 048
     Dates: start: 200703, end: 20130909

REACTIONS (4)
  - Varicella [Recovering/Resolving]
  - Vasculitis cerebral [Recovering/Resolving]
  - Cognitive disorder [Recovering/Resolving]
  - Balance disorder [Recovering/Resolving]
